FAERS Safety Report 8512111-X (Version None)
Quarter: 2012Q3

REPORT INFORMATION
  Report Type: 
  Country: None (occurrence: None)
  Receive Date: 20120716
  Receipt Date: 20120702
  Transmission Date: 20120928
  Serious: Yes (Hospitalization, Other)
  Sender: FDA-Public Use
  Company Number: US-JNJFOC-20120303413

PATIENT
  Sex: Female

DRUGS (25)
  1. RISPERDAL [Suspect]
     Route: 048
     Dates: start: 20100712
  2. RISPERDAL [Suspect]
     Route: 048
     Dates: start: 20101227
  3. RISPERIDONE [Suspect]
     Indication: PRODUCT USED FOR UNKNOWN INDICATION
     Route: 048
     Dates: end: 20120101
  4. HALDOL [Suspect]
     Indication: PRODUCT USED FOR UNKNOWN INDICATION
     Route: 065
  5. CANNABIS [Suspect]
     Indication: PRODUCT USED FOR UNKNOWN INDICATION
     Route: 065
  6. RISPERDAL [Suspect]
     Route: 048
     Dates: start: 20110428
  7. RISPERIDONE [Suspect]
     Route: 048
     Dates: end: 20120101
  8. MULTI-VITAMINS [Concomitant]
     Route: 065
  9. RISPERDAL [Suspect]
     Indication: PRODUCT USED FOR UNKNOWN INDICATION
     Route: 048
     Dates: start: 20100802
  10. RISPERDAL [Suspect]
     Route: 048
     Dates: start: 20100823
  11. RISPERDAL [Suspect]
     Route: 048
     Dates: start: 20110328
  12. IBUPROFEN (ADVIL) [Concomitant]
     Route: 065
  13. RISPERDAL CONSTA [Suspect]
     Indication: PRODUCT USED FOR UNKNOWN INDICATION
     Route: 030
  14. RISPERDAL [Suspect]
     Route: 048
     Dates: start: 20100927
  15. RISPERDAL [Suspect]
     Route: 048
     Dates: end: 20120101
  16. THORAZINE [Concomitant]
     Route: 065
  17. RISPERDAL [Suspect]
     Route: 048
     Dates: start: 20100510
  18. RISPERDAL [Suspect]
     Dosage: 4 MG+1 MG
     Route: 048
     Dates: start: 20100526
  19. MAGNESIUM HYDROXIDE TAB [Concomitant]
     Route: 065
  20. MILK OF MAGNESIA TAB [Concomitant]
     Route: 065
  21. RISPERDAL [Suspect]
     Route: 048
     Dates: start: 20100426
  22. RISPERDAL [Suspect]
     Route: 048
     Dates: end: 20120101
  23. RISPERDAL [Suspect]
     Route: 048
     Dates: start: 20110207
  24. ATIVAN [Concomitant]
     Route: 065
  25. COGENTIN [Concomitant]

REACTIONS (7)
  - NERVOUSNESS [None]
  - MUSCLE SPASMS [None]
  - PSYCHOTIC DISORDER [None]
  - TREATMENT NONCOMPLIANCE [None]
  - MATERNAL EXPOSURE DURING PREGNANCY [None]
  - PRODUCT ODOUR ABNORMAL [None]
  - PRODUCT TASTE ABNORMAL [None]
